FAERS Safety Report 8115819-3 (Version None)
Quarter: 2012Q1

REPORT INFORMATION
  Report Type: 
  Country: None (occurrence: None)
  Receive Date: 20120206
  Receipt Date: 20120124
  Transmission Date: 20120608
  Serious: Yes (Hospitalization)
  Sender: FDA-Public Use
  Company Number: FR-ELI_LILLY_AND_COMPANY-FR201111005910

PATIENT
  Sex: Female
  Weight: 53 kg

DRUGS (7)
  1. FORTEO [Suspect]
     Indication: OSTEOPOROSIS
     Dosage: 20 UG, QD
     Route: 058
     Dates: start: 20110909
  2. ATENOLOL [Concomitant]
     Indication: HYPERTENSION
     Dosage: 10 MG, QD
     Route: 048
  3. PLAVIX [Concomitant]
     Indication: ISCHAEMIC STROKE
     Dosage: 1 DF, QD
     Route: 048
  4. ATORVASTATIN [Concomitant]
     Indication: HYPERCHOLESTEROLAEMIA
     Dosage: 10 MG, QD
     Route: 048
  5. NEXIUM [Concomitant]
     Indication: HIATUS HERNIA
     Dosage: 40 MG, QD
     Route: 048
  6. PHENOBARBITAL TAB [Concomitant]
     Indication: EPILEPSY
     Dosage: 100 MG, QD
     Route: 048
  7. TEGRETOL [Concomitant]
     Indication: EPILEPSY
     Dosage: 200 MG, BID
     Route: 048

REACTIONS (1)
  - HERNIA HIATUS REPAIR [None]
